FAERS Safety Report 13592077 (Version 10)
Quarter: 2019Q3

REPORT INFORMATION
  Report Type: Report from Study
  Country: ES (occurrence: ES)
  Receive Date: 20170530
  Receipt Date: 20190801
  Transmission Date: 20191004
  Serious: Yes (Hospitalization)
  Sender: FDA-Public Use
  Company Number: ES-JNJFOC-20170520105

PATIENT
  Age: 62 Year
  Sex: Female
  Weight: 47 kg

DRUGS (7)
  1. DOXORUBICIN HYDROCHLORIDE. [Suspect]
     Active Substance: DOXORUBICIN HYDROCHLORIDE
     Dosage: CYCLE 2 TO 4
     Route: 042
     Dates: start: 20170309, end: 20170420
  2. HIGROTONA [Concomitant]
     Active Substance: CHLORTHALIDONE
     Route: 065
  3. TRABECTEDIN [Suspect]
     Active Substance: TRABECTEDIN
     Indication: OVARIAN CANCER
     Route: 042
     Dates: start: 20170216
  4. TRABECTEDIN [Suspect]
     Active Substance: TRABECTEDIN
     Dosage: CYCLE 2 TO 4
     Route: 042
     Dates: start: 20170309, end: 20170420
  5. MASDIL [Concomitant]
     Active Substance: DILTIAZEM HYDROCHLORIDE
     Indication: ATRIAL FIBRILLATION
     Route: 065
  6. ALDACTONE [Concomitant]
     Active Substance: SPIRONOLACTONE
     Indication: OLIGURIA
     Route: 065
  7. DOXORUBICIN HYDROCHLORIDE. [Suspect]
     Active Substance: DOXORUBICIN HYDROCHLORIDE
     Indication: OVARIAN CANCER
     Route: 042
     Dates: start: 20170216

REACTIONS (9)
  - Renal failure [Recovered/Resolved]
  - Fatigue [Recovered/Resolved]
  - Constipation [Recovered/Resolved]
  - Asthenia [Recovered/Resolved]
  - Transaminases increased [Recovered/Resolved]
  - Transaminases increased [Recovered/Resolved]
  - Pancytopenia [Recovered/Resolved]
  - Bacteraemia [Recovered/Resolved]
  - Anaemia [Recovered/Resolved]

NARRATIVE: CASE EVENT DATE: 20170309
